FAERS Safety Report 8591167-2 (Version None)
Quarter: 2012Q3

REPORT INFORMATION
  Report Type: 
  Country: None (occurrence: None)
  Receive Date: 20120813
  Receipt Date: 20120808
  Transmission Date: 20120928
  Serious: Yes (Death, Hospitalization)
  Sender: FDA-Public Use
  Company Number: US-GILEAD-2012-0059475

PATIENT
  Age: 13 Year
  Sex: Male

DRUGS (8)
  1. LETAIRIS [Suspect]
     Indication: PULMONARY HYPERTENSION
     Dosage: 5 MG, UNK
     Route: 048
     Dates: start: 20120601, end: 20120701
  2. FERROUS GLUCONATE [Concomitant]
  3. SILDENAFIL [Concomitant]
  4. DIGOXIN [Concomitant]
  5. LORATADINE [Concomitant]
  6. TREPROSTINIL [Concomitant]
  7. TRACLEER [Concomitant]
  8. VITAMIN C                          /00008001/ [Concomitant]

REACTIONS (3)
  - DEATH [None]
  - DYSARTHRIA [None]
  - HEMIPARESIS [None]
